FAERS Safety Report 11878964 (Version 6)
Quarter: 2016Q3

REPORT INFORMATION
  Report Type: Report from Study
  Country: CA (occurrence: CA)
  Receive Date: 20151230
  Receipt Date: 20160719
  Transmission Date: 20161109
  Serious: Yes (Hospitalization, Other)
  Sender: FDA-Public Use
  Company Number: PHHY2012CA098553

PATIENT
  Age: 55 Year
  Sex: Female

DRUGS (1)
  1. SANDOSTATIN LAR DEPOT [Suspect]
     Active Substance: OCTREOTIDE ACETATE
     Indication: NEUROENDOCRINE TUMOUR
     Dosage: 20 MG, QMO (EVERY 4 WEEKS/ONCE A MONTH)
     Route: 030
     Dates: start: 20110401

REACTIONS (15)
  - Deep vein thrombosis [Unknown]
  - Body temperature decreased [Unknown]
  - Blood glucose increased [Unknown]
  - Heart rate increased [Unknown]
  - Diarrhoea [Unknown]
  - Blood pressure diastolic increased [Unknown]
  - Blood potassium decreased [Unknown]
  - Blood pressure systolic increased [Unknown]
  - Incorrect route of drug administration [Unknown]
  - Blood glucose decreased [Unknown]
  - Heart rate decreased [Unknown]
  - Blood pressure increased [Unknown]
  - Blood pressure diastolic decreased [Unknown]
  - Drug ineffective [Unknown]
  - Abdominal mass [Unknown]

NARRATIVE: CASE EVENT DATE: 20121023
